FAERS Safety Report 7503857-0 (Version None)
Quarter: 2011Q2

REPORT INFORMATION
  Report Type: 
  Country: None (occurrence: None)
  Receive Date: 20110518
  Receipt Date: 20110505
  Transmission Date: 20111010
  Serious: Yes (Disabling, Other)
  Sender: FDA-Public Use
  Company Number: 2011-1123

PATIENT
  Age: 61 Year
  Sex: Male

DRUGS (5)
  1. DYSPORT (BOTULINUM TOXIN TYPE A) (BOTULINUM TOXIN TYPE A) [Suspect]
     Indication: MUSCLE SPASTICITY
     Dosage: 1000 UNITS (1000 UNITS,SINGLE CYCLE), INTRAMUSCULAR
     Route: 030
     Dates: start: 20110217, end: 20110217
  2. DYSPORT (BOTULINUM TOXIN TYPE A) (BOTULINUM TOXIN TYPE A) [Suspect]
     Indication: MUSCLE SPASTICITY
     Dosage: 1000 UNITS (1000 UNITS,SINGLE CYCLE), INTRAMUSCULAR
     Route: 030
     Dates: start: 20101103, end: 20101103
  3. ATORVASTATIN [Concomitant]
  4. ASPIRIN [Concomitant]
  5. RAMIPRIL [Concomitant]

REACTIONS (13)
  - DYSPHONIA [None]
  - HYPOAESTHESIA FACIAL [None]
  - LETHARGY [None]
  - VISION BLURRED [None]
  - EYELID PTOSIS [None]
  - SPEECH DISORDER [None]
  - ASTHENIA [None]
  - DIPLOPIA [None]
  - VISUAL ACUITY REDUCED [None]
  - HEADACHE [None]
  - NECK PAIN [None]
  - DRY MOUTH [None]
  - DYSPNOEA [None]
